FAERS Safety Report 17737474 (Version 2)
Quarter: 2025Q2

REPORT INFORMATION
  Report Type: Report from Study
  Country: DE (occurrence: DE)
  Receive Date: 20200504
  Receipt Date: 20250621
  Transmission Date: 20250716
  Serious: Yes (Death, Disabling, Other)
  Sender: AUROBINDO
  Company Number: DE-TEVA-2020-DE-1224824

PATIENT

DRUGS (1)
  1. RISPERIDONE [Suspect]
     Active Substance: RISPERIDONE
     Indication: Dementia
     Route: 065

REACTIONS (4)
  - Pneumonia [Fatal]
  - Immobile [Unknown]
  - Parkinsonism [Unknown]
  - Dysphagia [Unknown]
